FAERS Safety Report 13688295 (Version 1)
Quarter: 2017Q2

REPORT INFORMATION
  Report Type: Spontaneous
  Country: US (occurrence: US)
  Receive Date: 20170626
  Receipt Date: 20170626
  Transmission Date: 20170830
  Serious: No
  Sender: FDA-Public Use
  Company Number: US-TEVA-715850USA

PATIENT
  Sex: Female
  Weight: 77 kg

DRUGS (5)
  1. LITHIUM. [Concomitant]
     Active Substance: LITHIUM
  2. LAMOTRIGINE. [Suspect]
     Active Substance: LAMOTRIGINE
     Dosage: STARTED ON 25 MG AND WAS INCREASED TO 50 MG AFTER SIX DAYS
     Route: 065
     Dates: start: 201609
  3. LAMOTRIGINE. [Suspect]
     Active Substance: LAMOTRIGINE
     Route: 065
     Dates: start: 201605, end: 201609
  4. LAMOTRIGINE. [Suspect]
     Active Substance: LAMOTRIGINE
     Dates: start: 20160202
  5. LAMOTRIGINE. [Suspect]
     Active Substance: LAMOTRIGINE
     Route: 065
     Dates: start: 2005, end: 201605

REACTIONS (2)
  - Rash [Not Recovered/Not Resolved]
  - Granuloma annulare [Not Recovered/Not Resolved]
